FAERS Safety Report 11786943 (Version 1)
Quarter: 2015Q4

REPORT INFORMATION
  Report Type: Spontaneous
  Country: AT (occurrence: AT)
  Receive Date: 20151130
  Receipt Date: 20151130
  Transmission Date: 20160305
  Serious: Yes (Death, Life-Threatening, Hospitalization)
  Sender: FDA-Public Use
  Company Number: AT-JNJFOC-20151111499

PATIENT
  Age: 68 Year
  Sex: Female
  Weight: 70 kg

DRUGS (4)
  1. YONDELIS [Suspect]
     Active Substance: TRABECTEDIN
     Indication: OVARIAN CANCER RECURRENT
     Route: 042
     Dates: start: 20151001, end: 20151001
  2. YONDELIS [Suspect]
     Active Substance: TRABECTEDIN
     Indication: METASTATIC NEOPLASM
     Route: 042
     Dates: start: 20151001, end: 20151001
  3. YONDELIS [Suspect]
     Active Substance: TRABECTEDIN
     Indication: METASTATIC NEOPLASM
     Route: 042
     Dates: start: 20151022, end: 20151022
  4. YONDELIS [Suspect]
     Active Substance: TRABECTEDIN
     Indication: OVARIAN CANCER RECURRENT
     Route: 042
     Dates: start: 20151022, end: 20151022

REACTIONS (5)
  - Rhabdomyolysis [Fatal]
  - Renal failure [Fatal]
  - Sepsis [Fatal]
  - Multi-organ failure [Fatal]
  - Febrile neutropenia [Fatal]

NARRATIVE: CASE EVENT DATE: 20151102
